FAERS Safety Report 17977619 (Version 6)
Quarter: 2021Q1

REPORT INFORMATION
  Report Type: Report from Study
  Country: FR (occurrence: FR)
  Receive Date: 20200703
  Receipt Date: 20210120
  Transmission Date: 20210419
  Serious: Yes (Hospitalization, Other)
  Sender: FDA-Public Use
  Company Number: NVSC2020FR185249

PATIENT
  Age: 62 Year
  Sex: Female
  Weight: 45 kg

DRUGS (3)
  1. BYL719 [Suspect]
     Active Substance: ALPELISIB
     Indication: BREAST CANCER METASTATIC
     Dosage: 300 MG, QD
     Route: 048
     Dates: start: 20200323, end: 20200622
  2. BYL719 [Suspect]
     Active Substance: ALPELISIB
     Dosage: 300 MG, QD
     Route: 048
     Dates: start: 20200625, end: 20200815
  3. BYL719 [Suspect]
     Active Substance: ALPELISIB
     Dosage: 250 MG, QD
     Route: 048
     Dates: start: 20200819, end: 20200820

REACTIONS (9)
  - General physical health deterioration [Recovered/Resolved]
  - Face oedema [Not Recovered/Not Resolved]
  - Vomiting [Recovered/Resolved]
  - Malignant neoplasm progression [Unknown]
  - Nausea [Recovering/Resolving]
  - Diarrhoea [Recovering/Resolving]
  - Breast cancer metastatic [Unknown]
  - Hyperglycaemia [Unknown]
  - Vomiting [Unknown]

NARRATIVE: CASE EVENT DATE: 20200815
